FAERS Safety Report 14687799 (Version 1)
Quarter: 2018Q1

REPORT INFORMATION
  Report Type: Spontaneous
  Country: US (occurrence: US)
  Receive Date: 20180328
  Receipt Date: 20180328
  Transmission Date: 20180509
  Serious: No
  Sender: FDA-Public Use
  Company Number: US-AUROBINDO-AUR-APU-2017-38513

PATIENT

DRUGS (1)
  1. SERTRALINE 50MG [Suspect]
     Active Substance: SERTRALINE HYDROCHLORIDE
     Dosage: 50 MG, TWO TIMES A DAY
     Route: 065
     Dates: start: 20170522

REACTIONS (5)
  - Disturbance in attention [Unknown]
  - Panic attack [Unknown]
  - Drug ineffective [Unknown]
  - Anger [Unknown]
  - Product substitution issue [Unknown]
